FAERS Safety Report 7247393-8 (Version None)
Quarter: 2011Q1

REPORT INFORMATION
  Report Type: 
  Country: None (occurrence: None)
  Receive Date: 20110127
  Receipt Date: 20110117
  Transmission Date: 20110831
  Serious: Yes (Other)
  Sender: FDA-Public Use
  Company Number: PHHY2010US89456

PATIENT
  Age: 45 Year
  Sex: Female

DRUGS (5)
  1. METFORMIN [Concomitant]
     Indication: DIABETES MELLITUS
     Dosage: 500 MG, BID
  2. GILENYA [Suspect]
     Dosage: 0.5 MG, QD
     Route: 048
     Dates: start: 20101228
  3. IMITREX [Concomitant]
     Indication: MIGRAINE
     Dosage: 100 MG, PRN
  4. ZOLOFT [Concomitant]
     Dosage: 100 MG, DAILY
  5. ZANAFLEX [Concomitant]
     Dosage: 4 MG, BID

REACTIONS (1)
  - HEART RATE DECREASED [None]
